FAERS Safety Report 5917569-8 (Version None)
Quarter: 2008Q4

REPORT INFORMATION
  Report Type: 
  Country: None (occurrence: None)
  Receive Date: 20081010
  Receipt Date: 20081010
  Transmission Date: 20090506
  Serious: Yes (Hospitalization)
  Sender: FDA-Public Use
  Company Number: None

PATIENT
  Sex: Female
  Weight: 51.2 kg

DRUGS (2)
  1. OXALIPLATIN [Suspect]
     Indication: PANCREATIC CARCINOMA
     Dosage: 85 MG/M2 IV Q 14 DAYS
     Route: 042
     Dates: start: 20080903
  2. SORAFENIB -BAYER PHARMACEUTICALS [Suspect]
     Indication: PANCREATIC CARCINOMA
     Dosage: 200 MG PO BID
     Route: 048
     Dates: start: 20080903

REACTIONS (7)
  - DEEP VEIN THROMBOSIS [None]
  - DYSPNOEA [None]
  - FATIGUE [None]
  - MUSCULAR WEAKNESS [None]
  - MUSCULOSKELETAL DISORDER [None]
  - NEUTROPHIL COUNT DECREASED [None]
  - OEDEMA [None]
